FAERS Safety Report 10796007 (Version 1)
Quarter: 2015Q1

REPORT INFORMATION
  Report Type: Report from Study
  Country: US (occurrence: US)
  Receive Date: 20150216
  Receipt Date: 20150216
  Transmission Date: 20150721
  Serious: Yes (Other)
  Sender: FDA-Public Use
  Company Number: US-ROCHE-1535642

PATIENT

DRUGS (3)
  1. RITUXIMAB [Suspect]
     Active Substance: RITUXIMAB
     Indication: CHRONIC LYMPHOCYTIC LEUKAEMIA
     Dosage: WEEKLY FOR 4 WEEKS THEN MONTHLY DURING MONTHS (MO) 3-12
     Route: 042
  2. ALLOPURINOL. [Suspect]
     Active Substance: ALLOPURINOL
     Indication: CHRONIC LYMPHOCYTIC LEUKAEMIA
     Dosage: GIVEN FOR THE FIRST 2 WEEKS.
     Route: 048
  3. LENALIDOMIDE [Suspect]
     Active Substance: LENALIDOMIDE
     Indication: CHRONIC LYMPHOCYTIC LEUKAEMIA
     Dosage: FROM DAY 9 FOR 24 MONTH.
     Route: 048

REACTIONS (11)
  - Rash [Unknown]
  - Fatigue [Unknown]
  - Infusion related reaction [Unknown]
  - Thrombocytopenia [Unknown]
  - Tumour lysis syndrome [Unknown]
  - Infection [Unknown]
  - Pulmonary embolism [Unknown]
  - Neutropenia [Unknown]
  - Anaemia [Unknown]
  - Deep vein thrombosis [Unknown]
  - Bone marrow failure [Unknown]
